FAERS Safety Report 9787897 (Version 1)
Quarter: 2013Q4

REPORT INFORMATION
  Report Type: Spontaneous
  Country: US (occurrence: US)
  Receive Date: 20131230
  Receipt Date: 20131230
  Transmission Date: 20140711
  Serious: Yes (Other)
  Sender: FDA-Public Use
  Company Number: US-JNJFOC-20131215013

PATIENT
  Age: 47 Year
  Sex: Male

DRUGS (2)
  1. INFLIXIMAB, RECOMBINANT [Suspect]
     Indication: CUTANEOUS SARCOIDOSIS
     Dosage: AT WEEK 0, 2, AND 6 WEEK.
     Route: 042
  2. INFLIXIMAB, RECOMBINANT [Suspect]
     Indication: CUTANEOUS SARCOIDOSIS
     Route: 042

REACTIONS (2)
  - Secondary hypothyroidism [Recovered/Resolved]
  - Off label use [Unknown]
